FAERS Safety Report 7157256-4 (Version None)
Quarter: 2010Q4

REPORT INFORMATION
  Report Type: 
  Country: None (occurrence: None)
  Receive Date: 20101214
  Receipt Date: 20101206
  Transmission Date: 20110411
  Serious: Yes (Other)
  Sender: FDA-Public Use
  Company Number: PHHY2010US83013

PATIENT
  Sex: Male

DRUGS (1)
  1. FANAPT [Suspect]
     Route: 048

REACTIONS (3)
  - DRY MOUTH [None]
  - KIDNEY INFECTION [None]
  - WEIGHT INCREASED [None]
